FAERS Safety Report 20982964 (Version 1)
Quarter: 2022Q2

REPORT INFORMATION
  Report Type: Spontaneous
  Country: CN (occurrence: CN)
  Receive Date: 20220620
  Receipt Date: 20220620
  Transmission Date: 20220721
  Serious: Yes (Other)
  Sender: FDA-Public Use
  Company Number: CN-ZAMBON SWITZERLAND LTD.-2022CN000012

PATIENT

DRUGS (1)
  1. FOSFOMYCIN TROMETHAMINE [Suspect]
     Active Substance: FOSFOMYCIN TROMETHAMINE
     Indication: Urinary tract infection
     Dosage: 0.3 G, QOD
     Route: 048
     Dates: start: 20220530, end: 20220530

REACTIONS (1)
  - Diarrhoea [Recovering/Resolving]
